FAERS Safety Report 14559884 (Version 2)
Quarter: 2018Q2

REPORT INFORMATION
  Report Type: Spontaneous
  Country: US (occurrence: US)
  Receive Date: 20180221
  Receipt Date: 20180406
  Transmission Date: 20180711
  Serious: No
  Sender: FDA-Public Use
  Company Number: US-ASTRAZENECA-2018SE11248

PATIENT
  Sex: Male

DRUGS (1)
  1. SYMBICORT [Suspect]
     Active Substance: BUDESONIDE\FORMOTEROL FUMARATE DIHYDRATE
     Dosage: 160/4.5. UG, UNKNOWN DOSE AND FREQUENCY UNKNOWN
     Route: 055

REACTIONS (4)
  - Device issue [Unknown]
  - Cough [Unknown]
  - Muscular weakness [Unknown]
  - Visual impairment [Unknown]
